FAERS Safety Report 8960814 (Version 1)
Quarter: 2012Q4

REPORT INFORMATION
  Report Type: 
  Country: NL (occurrence: NL)
  Receive Date: 20121212
  Receipt Date: 20121212
  Transmission Date: 20130627
  Serious: Yes (Hospitalization)
  Sender: FDA-Public Use
  Company Number: NL-PFIZER INC-2012308661

PATIENT
  Age: 30 Year
  Sex: Female
  Weight: 51.6 kg

DRUGS (10)
  1. GENOTROPIN [Suspect]
     Dosage: 0.2 mg, 1x/day, 7 injections/week
     Route: 058
     Dates: start: 20030526
  2. SEROXAT ^CIBA-GEIGY^ [Concomitant]
     Indication: DEPRESSIVE DISORDER
     Dosage: UNK
  3. OXAZEPAM [Concomitant]
     Indication: DEPRESSIVE DISORDER
     Dosage: UNK
  4. DESMOPRESSIN [Concomitant]
     Indication: ADH DECREASED
     Dosage: UNK
     Dates: start: 19950701
  5. MARVELON [Concomitant]
     Indication: MENSTRUAL DISORDER
     Dosage: UNK
     Dates: start: 19980701
  6. MARVELON [Concomitant]
     Indication: GENITAL DISORDER FEMALE
  7. RITALIN [Concomitant]
     Dosage: UNK
     Dates: start: 20041218
  8. PANTOZOL [Concomitant]
     Dosage: UNK
     Dates: start: 20070702
  9. FOSAMAX [Concomitant]
     Dosage: UNK
     Dates: start: 20071019
  10. DICLOFENAC [Concomitant]
     Dosage: UNK
     Dates: start: 20090112

REACTIONS (1)
  - Hyponatraemia [Unknown]
